FAERS Safety Report 5142569-8 (Version None)
Quarter: 2006Q4

REPORT INFORMATION
  Report Type: 
  Country: None (occurrence: None)
  Receive Date: 20061031
  Receipt Date: 20061031
  Transmission Date: 20070319
  Serious: Yes (Hospitalization)
  Sender: FDA-Public Use
  Company Number: None

PATIENT
  Age: 58 Year
  Sex: Male
  Weight: 77 kg

DRUGS (2)
  1. NAPROXEN [Suspect]
     Indication: ARTHRALGIA
     Dosage: 250MG BID ORAL
     Route: 048
  2. NAPROXEN [Suspect]
     Indication: BACK PAIN
     Dosage: 250MG BID ORAL
     Route: 048

REACTIONS (6)
  - DRUG HYPERSENSITIVITY [None]
  - HYPOAESTHESIA [None]
  - PARAESTHESIA [None]
  - RESPIRATORY DISTRESS [None]
  - SIMILAR REACTION ON PREVIOUS EXPOSURE TO DRUG [None]
  - THROAT IRRITATION [None]
